FAERS Safety Report 6083608-X (Version None)
Quarter: 2009Q1

REPORT INFORMATION
  Report Type: 
  Country: None (occurrence: None)
  Receive Date: 20090219
  Receipt Date: 20090206
  Transmission Date: 20090719
  Serious: Yes (Death)
  Sender: FDA-Public Use
  Company Number: GB-SANOFI-SYNTHELABO-A01200901331

PATIENT
  Age: 71 Year
  Sex: Male

DRUGS (7)
  1. OMEPRAZOLE [Concomitant]
     Dosage: 20 MG
     Route: 065
  2. METOCLOPRAMIDE [Concomitant]
     Dosage: 10 MG
     Route: 065
  3. LACTULOSE [Concomitant]
     Dosage: 10 ML
     Route: 065
  4. HYDROCORTISONE [Concomitant]
     Dosage: 30 MG
     Route: 065
  5. FLUDROCORTISONE [Concomitant]
     Dosage: 0.2 MG
     Route: 065
  6. OXALIPLATIN [Suspect]
     Indication: OESOPHAGEAL CARCINOMA
     Dosage: 130 MG/M2
     Route: 042
     Dates: start: 20090116, end: 20090116
  7. FLUOROURACIL [Suspect]
     Dosage: 4 MG/M2
     Route: 042
     Dates: start: 20090116, end: 20090120

REACTIONS (2)
  - DEATH [None]
  - GASTROOESOPHAGEAL REFLUX DISEASE [None]
